FAERS Safety Report 7380688 (Version 2)
Quarter: 2015Q1

REPORT INFORMATION
  Report Type: Report from Study
  Country: BR (occurrence: BR)
  Receive Date: 20100507
  Receipt Date: 20150326
  Transmission Date: 20150721
  Serious: Yes (Other)
  Sender: FDA-Public Use
  Company Number: BR-PFIZER INC-2010023720

PATIENT
  Age: 51 Year
  Sex: Female
  Weight: 64 kg

DRUGS (13)
  1. CHAMPIX [Suspect]
     Active Substance: VARENICLINE TARTRATE
     Dosage: 1 DF, DAILY
     Route: 048
     Dates: start: 201203
  2. CHAMPIX [Suspect]
     Active Substance: VARENICLINE TARTRATE
     Indication: SMOKING CESSATION THERAPY
     Dosage: 1 MG, 2X/DAY (EVERY 12 HOURS)
     Route: 048
     Dates: start: 20100118
  3. RIVOTRIL [Concomitant]
     Active Substance: CLONAZEPAM
     Indication: SLEEP DISORDER
     Dosage: UNK
  4. OMEPRAZOLE. [Concomitant]
     Active Substance: OMEPRAZOLE
     Dosage: UNK
  5. PARACETAMOL [Concomitant]
     Active Substance: ACETAMINOPHEN
     Dosage: UNK
  6. ACTIVELLE [Concomitant]
     Active Substance: ESTRADIOL\NORETHINDRONE ACETATE
     Indication: HORMONE REPLACEMENT THERAPY
     Dosage: UNK
  7. DRAMAMINE [Concomitant]
     Active Substance: DIMENHYDRINATE
     Dosage: 0.5 DF, UNK
  8. GABAPENTIN. [Concomitant]
     Active Substance: GABAPENTIN
     Dosage: UNK
  9. LEXAPRO [Concomitant]
     Active Substance: ESCITALOPRAM OXALATE
     Dosage: UNK
  10. RIVOTRIL [Concomitant]
     Active Substance: CLONAZEPAM
     Dosage: 10 TABLETS AT NIGHT
     Dates: start: 201203
  11. MELATONIN [Concomitant]
     Active Substance: MELATONIN
     Indication: SLEEP DISORDER
     Dosage: 1 DF, 1X/DAY AT NIGHT
     Dates: start: 201203
  12. ZOLOFT [Concomitant]
     Active Substance: SERTRALINE HYDROCHLORIDE
     Indication: DEPRESSION
     Dosage: 50 MG, DAILY
     Dates: start: 201203
  13. CELEBRA [Concomitant]
     Active Substance: CELECOXIB
     Dosage: UNK

REACTIONS (11)
  - Carpal tunnel syndrome [Not Recovered/Not Resolved]
  - Nausea [Not Recovered/Not Resolved]
  - Vomiting [Not Recovered/Not Resolved]
  - Amnesia [Not Recovered/Not Resolved]
  - Insomnia [Not Recovered/Not Resolved]
  - Neoplasm [Unknown]
  - Confusional state [Not Recovered/Not Resolved]
  - Pigmentation disorder [Unknown]
  - Weight decreased [Not Recovered/Not Resolved]
  - Breast cancer [Unknown]
  - Haematoma [Unknown]

NARRATIVE: CASE EVENT DATE: 20100118
